FAERS Safety Report 9912794 (Version 1)
Quarter: 2014Q1

REPORT INFORMATION
  Report Type: Spontaneous
  Country: US (occurrence: US)
  Receive Date: 20140220
  Receipt Date: 20140220
  Transmission Date: 20141002
  Serious: No
  Sender: FDA-Public Use
  Company Number: US-PFIZER INC-2014046386

PATIENT
  Age: 56 Year
  Sex: Female

DRUGS (1)
  1. XALKORI [Suspect]
     Indication: BREAST CANCER FEMALE
     Dosage: 250 MG, 2X/DAY (TAKE ONE CAPSULE TWICE DAILY)
     Dates: start: 20131010

REACTIONS (6)
  - Disease progression [Unknown]
  - Breast cancer female [Unknown]
  - Back pain [Unknown]
  - Inflammation [Unknown]
  - Weight decreased [Unknown]
  - Off label use [Unknown]
